FAERS Safety Report 16160687 (Version 1)
Quarter: 2019Q2

REPORT INFORMATION
  Report Type: Spontaneous
  Country: US (occurrence: US)
  Receive Date: 20190405
  Receipt Date: 20190405
  Transmission Date: 20190711
  Serious: Yes (Disabling, Other)
  Sender: FDA-Public Use
  Company Number: PHEH2019US014029

PATIENT
  Sex: Male

DRUGS (5)
  1. AMPYRA [Suspect]
     Active Substance: DALFAMPRIDINE
     Indication: MULTIPLE SCLEROSIS
     Dosage: 10 MG, Q12H
     Route: 048
     Dates: start: 20180530
  2. REBIF [Suspect]
     Active Substance: INTERFERON BETA-1A
     Dosage: 22 UG, TIW
     Route: 058
     Dates: start: 201804
  3. REBIF [Suspect]
     Active Substance: INTERFERON BETA-1A
     Indication: PRODUCT USED FOR UNKNOWN INDICATION
     Dosage: 22 UG, TIW
     Route: 058
     Dates: start: 201804
  4. GLATOPA [Suspect]
     Active Substance: GLATIRAMER ACETATE
     Indication: PRODUCT USED FOR UNKNOWN INDICATION
     Dosage: 40 MG, TIW
     Route: 058
  5. REBIF [Suspect]
     Active Substance: INTERFERON BETA-1A
     Dosage: 44 UG, TIW
     Route: 058
     Dates: start: 201804

REACTIONS (11)
  - Ill-defined disorder [Unknown]
  - Hypokinesia [Unknown]
  - Influenza like illness [Not Recovered/Not Resolved]
  - Injection site urticaria [Not Recovered/Not Resolved]
  - Injection site pain [Unknown]
  - Renal injury [Unknown]
  - Liver injury [Unknown]
  - Urine analysis abnormal [Unknown]
  - Malaise [Unknown]
  - Feeling abnormal [Unknown]
  - Myalgia [Not Recovered/Not Resolved]
